FAERS Safety Report 8177116-X (Version None)
Quarter: 2012Q1

REPORT INFORMATION
  Report Type: 
  Country: None (occurrence: None)
  Receive Date: 20120301
  Receipt Date: 20120222
  Transmission Date: 20120608
  Serious: Yes (Hospitalization)
  Sender: FDA-Public Use
  Company Number: US-GLAXOSMITHKLINE-A0967927A

PATIENT
  Sex: Male

DRUGS (2)
  1. NOVOLIN 70/30 [Suspect]
     Indication: TYPE 2 DIABETES MELLITUS
     Route: 065
  2. ADVAIR DISKUS 100/50 [Suspect]
     Indication: RESPIRATORY DISORDER
     Route: 055

REACTIONS (3)
  - ASTHENIA [None]
  - PULMONARY OEDEMA [None]
  - DYSPNOEA [None]
